FAERS Safety Report 6011148-2 (Version None)
Quarter: 2008Q4

REPORT INFORMATION
  Report Type: 
  Country: None (occurrence: None)
  Receive Date: 20081217
  Receipt Date: 20081217
  Transmission Date: 20090506
  Serious: Yes (Life-Threatening, Hospitalization)
  Sender: FDA-Public Use
  Company Number: None

PATIENT
  Sex: Female
  Weight: 102 kg

DRUGS (1)
  1. PROPOFOL [Suspect]
     Dates: start: 20081201

REACTIONS (6)
  - ECG SIGNS OF MYOCARDIAL ISCHAEMIA [None]
  - PULMONARY OEDEMA [None]
  - RASH [None]
  - SPUTUM DISCOLOURED [None]
  - URTICARIA [None]
  - WHEEZING [None]
